FAERS Safety Report 25367498 (Version 1)
Quarter: 2025Q2

REPORT INFORMATION
  Report Type: Spontaneous
  Country: US (occurrence: US)
  Receive Date: 20250528
  Receipt Date: 20250528
  Transmission Date: 20250716
  Serious: Yes (Hospitalization)
  Sender: AUROBINDO
  Company Number: US-AUROBINDO-AUR-APL-2022-029180

PATIENT
  Age: 58 Year
  Sex: Male

DRUGS (9)
  1. MINOCYCLINE [Suspect]
     Active Substance: MINOCYCLINE HYDROCHLORIDE
     Indication: Pythium insidiosum infection
     Dosage: 100 MILLIGRAM, TWO TIMES A DAY
     Route: 048
  2. TERBINAFINE [Suspect]
     Active Substance: TERBINAFINE
     Indication: Pythium insidiosum infection
     Dosage: 250 MILLIGRAM, ONCE A DAY
     Route: 048
  3. POSACONAZOLE [Suspect]
     Active Substance: POSACONAZOLE
     Indication: Pythium insidiosum infection
     Route: 048
  4. POSACONAZOLE [Suspect]
     Active Substance: POSACONAZOLE
     Dosage: 300 MILLIGRAM, ONCE A DAY
     Route: 048
  5. AMOXICILLIN\CLAVULANIC ACID [Concomitant]
     Active Substance: AMOXICILLIN\CLAVULANIC ACID
     Indication: Skin lesion
     Route: 065
  6. AMPHOTERICIN B [Concomitant]
     Active Substance: AMPHOTERICIN B
     Indication: Product used for unknown indication
     Route: 042
  7. CASPOFUNGIN [Concomitant]
     Active Substance: CASPOFUNGIN
     Indication: Product used for unknown indication
     Route: 065
  8. DOXYCYCLINE [Concomitant]
     Active Substance: DOXYCYCLINE
     Indication: Skin lesion
     Route: 065
  9. ITRACONAZOLE [Concomitant]
     Active Substance: ITRACONAZOLE
     Indication: Product used for unknown indication
     Route: 065

REACTIONS (1)
  - Drug ineffective [Unknown]
